FAERS Safety Report 9412105 (Version 1)
Quarter: 2013Q3

REPORT INFORMATION
  Report Type: Spontaneous
  Country: US (occurrence: None)
  Receive Date: 20130719
  Receipt Date: 20130719
  Transmission Date: 20140515
  Serious: Yes (Hospitalization)
  Sender: FDA-Public Use
  Company Number: None

PATIENT
  Age: 40 Year
  Sex: Male

DRUGS (7)
  1. TECFIDERA [Suspect]
     Indication: RELAPSING-REMITTING MULTIPLE SCLEROSIS
     Route: 048
     Dates: start: 20130710, end: 20130714
  2. BACLOFEN [Concomitant]
  3. LISINOPRIL/HCTZ [Concomitant]
  4. NIACIN [Concomitant]
  5. FLUOXETINE [Concomitant]
  6. TRAZODONE [Concomitant]
  7. NORCO [Concomitant]

REACTIONS (2)
  - Pyrexia [None]
  - Abdominal pain [None]
